FAERS Safety Report 13305694 (Version 1)
Quarter: 2017Q1

REPORT INFORMATION
  Report Type: Spontaneous
  Country: US (occurrence: US)
  Receive Date: 20170308
  Receipt Date: 20170308
  Transmission Date: 20170428
  Serious: Yes (Other)
  Sender: FDA-Public Use
  Company Number: None

PATIENT
  Age: 63 Year
  Sex: Female
  Weight: 58.5 kg

DRUGS (11)
  1. ZANTAC [Concomitant]
     Active Substance: RANITIDINE HYDROCHLORIDE
  2. VITAMIN D3 [Concomitant]
     Active Substance: CHOLECALCIFEROL
  3. METAMUCIL [Concomitant]
     Active Substance: PLANTAGO SEED
  4. MULTI VITAMIN [Concomitant]
     Active Substance: VITAMINS
  5. CALCIUM 600 + D3 [Concomitant]
  6. FISH OIL [Concomitant]
     Active Substance: FISH OIL
  7. TURMERIC [Concomitant]
     Active Substance: TURMERIC
  8. LORATADINE. [Concomitant]
     Active Substance: LORATADINE
  9. PROLIA [Suspect]
     Active Substance: DENOSUMAB
     Indication: OSTEOPOROSIS
     Dosage: ?          QUANTITY:1 INJECTION(S);OTHER FREQUENCY:6 MONTHS;?
     Route: 030
  10. PROBIOTIC [Concomitant]
     Active Substance: PROBIOTICS NOS
  11. MAGNESIUM [Concomitant]
     Active Substance: MAGNESIUM

REACTIONS (1)
  - Gastric disorder [None]

NARRATIVE: CASE EVENT DATE: 20170228
